FAERS Safety Report 13531623 (Version 1)
Quarter: 2017Q2

REPORT INFORMATION
  Report Type: Spontaneous
  Country: US (occurrence: US)
  Receive Date: 20170510
  Receipt Date: 20170510
  Transmission Date: 20170830
  Serious: Yes (Hospitalization)
  Sender: FDA-Public Use
  Company Number: PHEH2017US013015

PATIENT
  Age: 17 Year
  Sex: Male

DRUGS (4)
  1. PROGRAF [Suspect]
     Active Substance: TACROLIMUS\TACROLIMUS ANHYDROUS
     Indication: RENAL TRANSPLANT
     Dosage: 6 MG, QD (3 MG IN MORNING AND 3 MG IN NIGHT)
     Route: 065
     Dates: start: 200902
  2. PROGRAF [Suspect]
     Active Substance: TACROLIMUS\TACROLIMUS ANHYDROUS
     Dosage: 6.5 MG, QD (3 MG IN MORNING ,3.5 MG AT NIGHT)
     Route: 065
  3. MYFORTIC [Suspect]
     Active Substance: MYCOPHENOLATE SODIUM
     Indication: RENAL TRANSPLANT
     Dosage: UNK
     Route: 065
  4. PROGRAF [Suspect]
     Active Substance: TACROLIMUS\TACROLIMUS ANHYDROUS
     Dosage: 6.5 MG, QD (3.5 MG IN MORNING AND 3 MG IN NIGHT)
     Route: 065

REACTIONS (3)
  - Tonsillar hypertrophy [Unknown]
  - Tremor [Unknown]
  - Oropharyngeal pain [Unknown]
